FAERS Safety Report 13819646 (Version 1)
Quarter: 2017Q3

REPORT INFORMATION
  Report Type: Report from Study
  Country: US (occurrence: US)
  Receive Date: 20170731
  Receipt Date: 20170731
  Transmission Date: 20171127
  Serious: No
  Sender: FDA-Public Use
  Company Number: US-EXELIXIS-CABO-17007897

PATIENT
  Age: 64 Year
  Sex: Male

DRUGS (9)
  1. LIPITOR [Concomitant]
     Active Substance: ATORVASTATIN CALCIUM
  2. CABOMETYX [Suspect]
     Active Substance: CABOZANTINIB S-MALATE
     Dosage: 40 MG, QD
     Route: 048
     Dates: start: 20170306
  3. CEFTRIAXONE. [Concomitant]
     Active Substance: CEFTRIAXONE
  4. CABOMETYX [Suspect]
     Active Substance: CABOZANTINIB S-MALATE
     Indication: RENAL CANCER
     Dosage: 60 MG, QD
     Route: 048
     Dates: start: 20161231, end: 2017
  5. HYDROCORTISONE. [Concomitant]
     Active Substance: HYDROCORTISONE
  6. HYDROCHLOROTHIAZIDE. [Concomitant]
     Active Substance: HYDROCHLOROTHIAZIDE
  7. LEVAQUIN [Concomitant]
     Active Substance: LEVOFLOXACIN
  8. ATROVENT [Concomitant]
     Active Substance: IPRATROPIUM BROMIDE
  9. LEVOTHYROXINE SODIUM. [Concomitant]
     Active Substance: LEVOTHYROXINE SODIUM

REACTIONS (3)
  - Blood bilirubin increased [Recovered/Resolved]
  - Chromaturia [Unknown]
  - Faeces soft [Unknown]

NARRATIVE: CASE EVENT DATE: 20170103
